FAERS Safety Report 4793904-1 (Version None)
Quarter: 2005Q4

REPORT INFORMATION
  Report Type: 
  Country: None (occurrence: None)
  Receive Date: 20051006
  Receipt Date: 20051006
  Transmission Date: 20060501
  Serious: Yes (Hospitalization, Other)
  Sender: FDA-Public Use
  Company Number: None

PATIENT
  Sex: Male
  Weight: 105.5 kg

DRUGS (11)
  1. CAPECITIBINE [Suspect]
     Indication: RECTAL CANCER
     Dosage: SEE IMAGE
     Dates: start: 20050918, end: 20050930
  2. CAPECITIBINE [Suspect]
     Indication: RECTAL CANCER
     Dosage: SEE IMAGE
     Dates: start: 20050918
  3. IRINOTECAN [Suspect]
     Dosage: SEE IMAGE
     Route: 042
     Dates: start: 20050919, end: 20050926
  4. RADIATION [Suspect]
     Dosage: SEE IIMAGE
  5. DIOVAN [Concomitant]
  6. NORVASC [Concomitant]
  7. IMODIUM [Concomitant]
  8. KYTRIL [Concomitant]
  9. LOMOTIL [Concomitant]
  10. LORAZEPAM [Concomitant]
  11. POTASSIUM [Concomitant]

REACTIONS (1)
  - DIARRHOEA [None]
